FAERS Safety Report 15424327 (Version 2)
Quarter: 2018Q3

REPORT INFORMATION
  Report Type: Spontaneous
  Country: US (occurrence: US)
  Receive Date: 20180925
  Receipt Date: 20180929
  Transmission Date: 20181010
  Serious: No
  Sender: FDA-Public Use
  Company Number: US-SA-2018SA266213

PATIENT
  Age: 39 Year
  Sex: Female

DRUGS (9)
  1. MAGNESIUM [Concomitant]
     Active Substance: MAGNESIUM
  2. DUPIXENT [Suspect]
     Active Substance: DUPILUMAB
     Dosage: 300 MG, QOW
     Route: 058
     Dates: start: 20180903
  3. LISINOPRIL. [Concomitant]
     Active Substance: LISINOPRIL
  4. ASMANEX HFA [Concomitant]
     Active Substance: MOMETASONE FUROATE
  5. DIPHENHYDRAMINE. [Concomitant]
     Active Substance: DIPHENHYDRAMINE
  6. MELOXICAM. [Concomitant]
     Active Substance: MELOXICAM
  7. LEVETIRACETAM. [Concomitant]
     Active Substance: LEVETIRACETAM
  8. LEVOTHYROXINE. [Concomitant]
     Active Substance: LEVOTHYROXINE
  9. DUPIXENT [Suspect]
     Active Substance: DUPILUMAB
     Indication: DERMATITIS ATOPIC
     Dosage: 600 MG, 1X
     Route: 058
     Dates: start: 20180820, end: 20180820

REACTIONS (4)
  - Injection site pain [Unknown]
  - Fatigue [Not Recovered/Not Resolved]
  - Intentional product misuse [Unknown]
  - Dermatitis atopic [Not Recovered/Not Resolved]

NARRATIVE: CASE EVENT DATE: 2018
